FAERS Safety Report 10370859 (Version 2)
Quarter: 2014Q3

REPORT INFORMATION
  Report Type: Spontaneous
  Country: PH (occurrence: PH)
  Receive Date: 20140808
  Receipt Date: 20140808
  Transmission Date: 20150326
  Serious: Yes (Hospitalization)
  Sender: FDA-Public Use
  Company Number: PHHY2014PH095826

PATIENT
  Age: 16 Year
  Sex: Male

DRUGS (2)
  1. TRILEPTAL [Suspect]
     Active Substance: OXCARBAZEPINE
     Indication: PARTIAL SEIZURES
     Dosage: 300 MG, BID
     Route: 048
     Dates: start: 20140721, end: 20140725
  2. TRILEPTAL [Suspect]
     Active Substance: OXCARBAZEPINE
     Dosage: 300 MG, (IN MORNING AND 600 MG IN THE PM)
     Route: 048
     Dates: start: 20140726, end: 20140731

REACTIONS (12)
  - Throat lesion [Recovering/Resolving]
  - Erythema multiforme [Recovering/Resolving]
  - Rash morbilliform [Recovering/Resolving]
  - Skin hyperpigmentation [Unknown]
  - Skin exfoliation [Unknown]
  - Viral tonsillitis [Unknown]
  - Dysphagia [Recovering/Resolving]
  - Blister [Unknown]
  - Pyrexia [Unknown]
  - Rash pruritic [Recovering/Resolving]
  - Pharyngeal erythema [Unknown]
  - Lip blister [Unknown]

NARRATIVE: CASE EVENT DATE: 20140728
